FAERS Safety Report 7389387-8 (Version None)
Quarter: 2011Q2

REPORT INFORMATION
  Report Type: 
  Country: None (occurrence: None)
  Receive Date: 20110401
  Receipt Date: 20110324
  Transmission Date: 20111010
  Serious: Yes (Other)
  Sender: FDA-Public Use
  Company Number: B0710012A

PATIENT
  Age: 43 Year
  Sex: Male

DRUGS (3)
  1. ENTECAVIR [Suspect]
     Indication: HEPATITIS B
     Dosage: .5MG PER DAY
  2. HEPSERA [Suspect]
     Indication: HEPATITIS B
     Dosage: 10MG PER DAY
     Route: 065
  3. LAMIVUDINE [Suspect]
     Indication: HEPATITIS B
     Dosage: 100MG PER DAY

REACTIONS (5)
  - NO THERAPEUTIC RESPONSE [None]
  - GENOTYPE DRUG RESISTANCE TEST POSITIVE [None]
  - ALANINE AMINOTRANSFERASE INCREASED [None]
  - LABORATORY TEST ABNORMAL [None]
  - VIRAL LOAD INCREASED [None]
